FAERS Safety Report 4882566-0 (Version None)
Quarter: 2006Q1

REPORT INFORMATION
  Report Type: 
  Country: None (occurrence: None)
  Receive Date: 20060113
  Receipt Date: 20060104
  Transmission Date: 20060701
  Serious: Yes (Hospitalization)
  Sender: FDA-Public Use
  Company Number: TPA2006A00013

PATIENT
  Age: 44 Year
  Sex: Female

DRUGS (7)
  1. ACTOS [Suspect]
     Indication: DIABETES MELLITUS
     Dosage: PER ORAL
     Route: 048
     Dates: end: 20030101
  2. ACTOS [Suspect]
     Indication: DIABETES MELLITUS
     Dosage: PER ORAL
     Route: 048
     Dates: start: 20040801, end: 20050701
  3. CYMBALTA (ARICLAIM) (60 MILLIGRAM) [Suspect]
     Dosage: 60 MG, 2 IN 1 D
     Dates: start: 20050101
  4. HUMALOG [Concomitant]
  5. SYNTHROID [Concomitant]
  6. TOPAMAX [Concomitant]
  7. LIPITOR [Concomitant]

REACTIONS (4)
  - CARPAL TUNNEL SYNDROME [None]
  - HEPATITIS A [None]
  - MIGRAINE [None]
  - NERVE INJURY [None]
